FAERS Safety Report 6642050-0 (Version None)
Quarter: 2010Q1

REPORT INFORMATION
  Report Type: 
  Country: None (occurrence: None)
  Receive Date: 20100316
  Receipt Date: 20100307
  Transmission Date: 20100710
  Serious: Yes (Hospitalization)
  Sender: FDA-Public Use
  Company Number: A0849047A

PATIENT
  Sex: Female

DRUGS (1)
  1. SENSODYNE-F [Suspect]
     Indication: DENTAL CLEANING
     Dosage: DENTAL
     Route: 004

REACTIONS (4)
  - CHEST PAIN [None]
  - DIZZINESS [None]
  - HEADACHE [None]
  - PALPITATIONS [None]
